FAERS Safety Report 7381367-1 (Version None)
Quarter: 2011Q1

REPORT INFORMATION
  Report Type: 
  Country: None (occurrence: None)
  Receive Date: 20110321
  Receipt Date: 20110309
  Transmission Date: 20110831
  Serious: Yes (Death)
  Sender: FDA-Public Use
  Company Number: 1000019331

PATIENT
  Age: 66 Year
  Sex: Male

DRUGS (2)
  1. STEMETIL (PROCHLOROPERAZINE) [Concomitant]
  2. CELEXA [Suspect]
     Dosage: 10 MG (10 MG, 1 IN 1 D), ORAL
     Route: 048

REACTIONS (2)
  - COMPLETED SUICIDE [None]
  - EMOTIONAL DISORDER [None]
